FAERS Safety Report 8391799-0 (Version None)
Quarter: 2012Q2

REPORT INFORMATION
  Report Type: 
  Country: None (occurrence: None)
  Receive Date: 20120529
  Receipt Date: 20120528
  Transmission Date: 20120825
  Serious: Yes (Hospitalization)
  Sender: FDA-Public Use
  Company Number: US-GLAXOSMITHKLINE-A0805973A

PATIENT
  Age: 47 Year
  Sex: Female
  Weight: 81.4 kg

DRUGS (16)
  1. VERAPAMIL HCL [Concomitant]
  2. CELEXA [Concomitant]
  3. BUPROPION HCL [Concomitant]
  4. DIOVAN HCT [Concomitant]
  5. GABITRIL [Concomitant]
  6. CLORAZEPATE DIPOTASSIUM [Concomitant]
  7. ZONEGRAN [Concomitant]
  8. ZETIA [Concomitant]
  9. NASACORT [Concomitant]
  10. AVANDIA [Suspect]
     Indication: TYPE 2 DIABETES MELLITUS
     Dosage: 8MG PER DAY
     Route: 048
     Dates: start: 20030101, end: 20081231
  11. ZELNORM [Concomitant]
  12. CLONIDINE [Concomitant]
  13. NEURONTIN [Concomitant]
  14. CLARITIN [Concomitant]
  15. ZANAFLEX [Concomitant]
  16. ACIPHEX [Concomitant]

REACTIONS (7)
  - CEREBROVASCULAR ACCIDENT [None]
  - CARDIAC FAILURE CONGESTIVE [None]
  - RESPIRATORY FAILURE [None]
  - MYOCARDIAL INFARCTION [None]
  - NEUROPATHY PERIPHERAL [None]
  - PAIN [None]
  - CATHETER PLACEMENT [None]
